FAERS Safety Report 8018415-1 (Version None)
Quarter: 2012Q1

REPORT INFORMATION
  Report Type: 
  Country: None (occurrence: None)
  Receive Date: 20120103
  Receipt Date: 20111228
  Transmission Date: 20120608
  Serious: Yes (Death)
  Sender: FDA-Public Use
  Company Number: CO-PFIZER INC-2011224224

PATIENT
  Age: 57 Year
  Sex: Female

DRUGS (5)
  1. NORVASC [Suspect]
     Dosage: 5 MG, 1X/DAY
     Route: 048
     Dates: start: 20041209
  2. GLIBENCLAMIDE [Concomitant]
     Dosage: 5 MG, 1X/DAY
     Route: 048
  3. LOSARTAN [Concomitant]
     Dosage: 50 MG, 2X/DAY
     Route: 048
  4. OLMESARTAN MEDOXOMIL [Suspect]
     Dosage: 20 MG, 1X/DAY
     Route: 048
     Dates: start: 20041209
  5. LIPITOR [Suspect]
     Dosage: 10 MG, 1X/DAY
     Route: 048
     Dates: start: 20041209

REACTIONS (1)
  - ACUTE MYOCARDIAL INFARCTION [None]
